FAERS Safety Report 10469357 (Version 1)
Quarter: 2014Q3

REPORT INFORMATION
  Report Type: Report from Study
  Country: BR (occurrence: BR)
  Receive Date: 20140923
  Receipt Date: 20140923
  Transmission Date: 20150326
  Serious: Yes (Other)
  Sender: FDA-Public Use
  Company Number: PHHY2014BR123285

PATIENT
  Age: 80 Year
  Sex: Male

DRUGS (1)
  1. EXELON PATCH [Suspect]
     Active Substance: RIVASTIGMINE
     Dosage: 1 DF, A DAY
     Route: 062
     Dates: start: 201403

REACTIONS (3)
  - Dementia Alzheimer^s type [Unknown]
  - Apathy [Unknown]
  - Memory impairment [Unknown]
